FAERS Safety Report 5292021-4 (Version None)
Quarter: 2007Q2

REPORT INFORMATION
  Report Type: 
  Country: None (occurrence: None)
  Receive Date: 20070410
  Receipt Date: 20070330
  Transmission Date: 20071010
  Serious: Yes (Other)
  Sender: FDA-Public Use
  Company Number: PT-JNJFOC-20070400731

PATIENT
  Sex: Female
  Weight: 65 kg

DRUGS (2)
  1. TOPAMAX [Suspect]
     Indication: HEADACHE
     Route: 048
  2. AMITRIPTYLINE HYDROCHLORIDE [Concomitant]
     Indication: HEADACHE
     Route: 048

REACTIONS (2)
  - RETINAL DYSTROPHY [None]
  - VISUAL ACUITY REDUCED [None]
